FAERS Safety Report 4957835-6 (Version None)
Quarter: 2006Q1

REPORT INFORMATION
  Report Type: 
  Country: None (occurrence: None)
  Receive Date: 20060330
  Receipt Date: 20060317
  Transmission Date: 20060701
  Serious: Yes (Disabling)
  Sender: FDA-Public Use
  Company Number: PHRM2006FR01076

PATIENT
  Age: 79 Year
  Sex: Male

DRUGS (9)
  1. AREDIA [Suspect]
     Dosage: 30 MG
     Route: 042
     Dates: start: 20050504, end: 20051028
  2. ISOSORBIDE DINITRATE [Concomitant]
  3. MONO-TILDIEM [Concomitant]
  4. FENOFIBRATE [Concomitant]
  5. OGAST [Concomitant]
  6. MINISINTROM [Concomitant]
  7. PERMIXON [Concomitant]
  8. PERFALGAN [Concomitant]
  9. CALCIUM W/COLECALCIFEROL [Concomitant]

REACTIONS (2)
  - DEAFNESS NEUROSENSORY [None]
  - DISEASE PROGRESSION [None]
